FAERS Safety Report 9123325 (Version 1)
Quarter: 2013Q1

REPORT INFORMATION
  Report Type: Spontaneous
  Country: US (occurrence: US)
  Receive Date: 20130227
  Receipt Date: 20130227
  Transmission Date: 20140127
  Serious: Yes (Other)
  Sender: FDA-Public Use
  Company Number: US-BAYER-2013-023531

PATIENT
  Age: 28 Year
  Sex: Female
  Weight: 107.3 kg

DRUGS (11)
  1. YASMIN [Suspect]
  2. SYEDA [Suspect]
  3. HYDROXYZINE PAMOATE [Concomitant]
     Dosage: 25 MG, QID
  4. LORAZEPAM [Concomitant]
     Dosage: 5 MG, PRN
  5. ABILIFY [Concomitant]
     Dosage: 15 MG, UNK
  6. BUSPIRONE [Concomitant]
     Dosage: 15 MG, TID
  7. TRAZODONE [Concomitant]
     Dosage: 150 MG, UNK
  8. PRAZOSIN [Concomitant]
     Dosage: 5 MG, UNK
  9. SERTRALINE [Concomitant]
     Dosage: 100 MG, UNK
  10. SUMATRIPTAN [Concomitant]
     Dosage: UNK UNK, PRN
  11. PLAN B [Concomitant]

REACTIONS (2)
  - Pulmonary embolism [None]
  - Deep vein thrombosis [None]
